FAERS Safety Report 5173263-5 (Version None)
Quarter: 2006Q4

REPORT INFORMATION
  Report Type: 
  Country: None (occurrence: None)
  Receive Date: 20061214
  Receipt Date: 20061207
  Transmission Date: 20070319
  Serious: Yes (Hospitalization, Other)
  Sender: FDA-Public Use
  Company Number: US-PURDUE-USA_2006_0025890

PATIENT
  Age: 40 Year
  Sex: Male
  Weight: 112 kg

DRUGS (7)
  1. OXYCONTIN [Suspect]
     Indication: BACK PAIN
     Dosage: 80 MG, BID
     Dates: start: 20060401
  2. LISINOPRIL W/HYDROCHLOROTHIAZIDE [Concomitant]
     Indication: HYPERTENSION
     Dosage: 20 MG, DAILY
     Dates: start: 20051201
  3. LOPRESSOR [Concomitant]
     Indication: HYPERTENSION
     Dosage: 100 MG, BID
  4. LASIX [Concomitant]
     Indication: FLUID RETENTION
     Dosage: 40 MG, PRN
  5. METOPROLOL SUCCINATE [Concomitant]
     Indication: HYPERTENSION
     Dosage: 50 MG, BID
  6. NEURONTIN [Concomitant]
     Indication: PAIN
     Dosage: 800 MG, QID
  7. ASPIRIN [Concomitant]
     Indication: DRUG USE FOR UNKNOWN INDICATION
     Dosage: 81 MG, DAILY

REACTIONS (6)
  - ABDOMINAL PAIN [None]
  - CONSTIPATION [None]
  - FLUID RETENTION [None]
  - PERICARDIAL EFFUSION [None]
  - PLEURAL EFFUSION [None]
  - WEIGHT INCREASED [None]
